FAERS Safety Report 10411571 (Version 2)
Quarter: 2014Q3

REPORT INFORMATION
  Report Type: Report from Study
  Country: US (occurrence: US)
  Receive Date: 20140827
  Receipt Date: 20140916
  Transmission Date: 20150326
  Serious: Yes (Hospitalization)
  Sender: FDA-Public Use
  Company Number: US-BIOGENIDEC-2014BI083798

PATIENT
  Age: 46 Year
  Sex: Female
  Weight: 78 kg

DRUGS (18)
  1. VOLTAREN XR [Concomitant]
     Active Substance: DICLOFENAC SODIUM
  2. HYDROCODONE [Concomitant]
     Active Substance: HYDROCODONE
  3. VISTARIL [Concomitant]
     Active Substance: HYDROXYZINE PAMOATE
  4. LIPITOR [Concomitant]
     Active Substance: ATORVASTATIN CALCIUM
  5. OMERPRAZOLE [Concomitant]
  6. VITAMIN D [Concomitant]
     Active Substance: CHOLECALCIFEROL
  7. MEPERIDINE [Concomitant]
     Active Substance: MEPERIDINE
  8. METOPROLOL [Concomitant]
     Active Substance: METOPROLOL
  9. DEPAKOTE [Concomitant]
     Active Substance: DIVALPROEX SODIUM
  10. PLAVIX [Concomitant]
     Active Substance: CLOPIDOGREL BISULFATE
  11. ASPIRIN. [Concomitant]
     Active Substance: ASPIRIN
  12. CARAFATE [Concomitant]
     Active Substance: SUCRALFATE
  13. TECFIDERA [Suspect]
     Active Substance: DIMETHYL FUMARATE
     Indication: MULTIPLE SCLEROSIS
     Route: 048
     Dates: start: 201401
  14. SOMA [Concomitant]
     Active Substance: CARISOPRODOL
  15. TECFIDERA [Suspect]
     Active Substance: DIMETHYL FUMARATE
     Indication: MULTIPLE SCLEROSIS
     Route: 048
     Dates: start: 20140219
  16. TECFIDERA [Suspect]
     Active Substance: DIMETHYL FUMARATE
     Indication: MULTIPLE SCLEROSIS
  17. RESTORIL [Concomitant]
     Active Substance: TEMAZEPAM
  18. FOLIC ACID. [Concomitant]
     Active Substance: FOLIC ACID

REACTIONS (2)
  - Myocardial infarction [Unknown]
  - Loss of consciousness [Unknown]

NARRATIVE: CASE EVENT DATE: 20140326
